FAERS Safety Report 14148768 (Version 1)
Quarter: 2017Q4

REPORT INFORMATION
  Report Type: Spontaneous
  Country: US (occurrence: US)
  Receive Date: 20171101
  Receipt Date: 20171101
  Transmission Date: 20180321
  Serious: Yes (Hospitalization, Other)
  Sender: FDA-Public Use
  Company Number: US-GLAXOSMITHKLINE-US2017166681

PATIENT
  Age: 71 Year
  Sex: Female

DRUGS (24)
  1. ADVAIR DISKUS [Suspect]
     Active Substance: FLUTICASONE PROPIONATE\SALMETEROL XINAFOATE
     Indication: DYSPNOEA
     Dosage: 1 PUFF(S), BID
     Route: 055
     Dates: start: 2011
  2. PLAQUENIL [Concomitant]
     Active Substance: HYDROXYCHLOROQUINE SULFATE
  3. REFRESH P.M. [Concomitant]
     Active Substance: MINERAL OIL\PETROLATUM
  4. SULINDAC. [Concomitant]
     Active Substance: SULINDAC
  5. DIAZEPAM. [Concomitant]
     Active Substance: DIAZEPAM
  6. NORCO [Concomitant]
     Active Substance: ACETAMINOPHEN\HYDROCODONE BITARTRATE
  7. TRIAMTERENE AND HYDROCHLOROTHIAZIDE [Concomitant]
     Active Substance: HYDROCHLOROTHIAZIDE\TRIAMTERENE
  8. TRAMADOL. [Concomitant]
     Active Substance: TRAMADOL
  9. CYCLOSPORINE. [Concomitant]
     Active Substance: CYCLOSPORINE
  10. LAMICTAL [Concomitant]
     Active Substance: LAMOTRIGINE
  11. SEROQUEL [Concomitant]
     Active Substance: QUETIAPINE FUMARATE
  12. BION TEARS [Concomitant]
     Active Substance: DEXTRAN 70\HYPROMELLOSE 2910 (4000 MPA.S)
  13. BIOTENE NOS [Concomitant]
     Active Substance: CETYLPYRIDINIUM CHLORIDE OR SODIUM FLUORIDE OR SODIUM MONOFLUOROPHOSPHATE OR GLUCOSE OXIDASE\LACTOFERRIN\LACTOPEROXIDASE BOVINE\LYSOZYME
  14. COLACE CAPSULE [Concomitant]
  15. FLUNISOLIDE NASAL SPRAY [Concomitant]
  16. PANTOPRAZOLE [Concomitant]
     Active Substance: PANTOPRAZOLE
  17. RESTASIS [Concomitant]
     Active Substance: CYCLOSPORINE
  18. TYLENOL [Concomitant]
     Active Substance: ACETAMINOPHEN
  19. WARFARIN [Concomitant]
     Active Substance: WARFARIN
  20. HYDROXYZINE [Concomitant]
     Active Substance: HYDROXYZINE HYDROCHLORIDE
  21. LOTEMAX [Concomitant]
     Active Substance: LOTEPREDNOL ETABONATE
  22. PANTOPRAZOLE SODIUM. [Concomitant]
     Active Substance: PANTOPRAZOLE SODIUM
  23. LEVOTHYROXINE. [Concomitant]
     Active Substance: LEVOTHYROXINE
  24. VENTOLIN HFA [Suspect]
     Active Substance: ALBUTEROL SULFATE
     Indication: DYSPNOEA
     Dosage: 1 PUFF(S), PRN
     Route: 055

REACTIONS (5)
  - Femur fracture [Recovering/Resolving]
  - Eye pruritus [Recovering/Resolving]
  - Fall [Recovering/Resolving]
  - Rhinorrhoea [Recovering/Resolving]
  - Eye discharge [Recovering/Resolving]

NARRATIVE: CASE EVENT DATE: 20170715
